FAERS Safety Report 7740243-2 (Version None)
Quarter: 2011Q3

REPORT INFORMATION
  Report Type: 
  Country: None (occurrence: None)
  Receive Date: 20110909
  Receipt Date: 20110906
  Transmission Date: 20111222
  Serious: Yes (Other)
  Sender: FDA-Public Use
  Company Number: US-PFIZER INC-2011195376

PATIENT
  Sex: Female

DRUGS (3)
  1. DILANTIN [Suspect]
     Dosage: 100 MG, 3X/DAY
     Dates: start: 20110701
  2. TOPAMAX [Suspect]
  3. PRIMIDONE [Suspect]

REACTIONS (10)
  - ANTICONVULSANT DRUG LEVEL INCREASED [None]
  - SMALLPOX [None]
  - DYSGRAPHIA [None]
  - ENCEPHALITIS [None]
  - GAIT DISTURBANCE [None]
  - CONVULSION [None]
  - FATIGUE [None]
  - VISUAL IMPAIRMENT [None]
  - BALANCE DISORDER [None]
  - AMNESIA [None]
